FAERS Safety Report 18911324 (Version 1)
Quarter: 2021Q1

REPORT INFORMATION
  Report Type: Not Available
  Country: None (occurrence: None)
  Receive Date: 20210218
  Receipt Date: 20210218
  Transmission Date: 20210420
  Serious: No
  Sender: FDA-Public Use
  Company Number: US-AKORN-161497

PATIENT
  Sex: Male

DRUGS (1)
  1. COSOPT PF [Suspect]
     Active Substance: DORZOLAMIDE HYDROCHLORIDE\TIMOLOL MALEATE

REACTIONS (7)
  - Eye pruritus [None]
  - Pruritus [None]
  - Feeling jittery [None]
  - Balance disorder [None]
  - Vision blurred [None]
  - Confusional state [None]
  - Muscular weakness [None]
